FAERS Safety Report 7355696-1 (Version None)
Quarter: 2011Q1

REPORT INFORMATION
  Report Type: 
  Country: None (occurrence: None)
  Receive Date: 20110316
  Receipt Date: 20110310
  Transmission Date: 20110831
  Serious: Yes (Hospitalization, Other)
  Sender: FDA-Public Use
  Company Number: GB-PFIZER INC-2009291536

PATIENT
  Age: 45 Year
  Sex: Male
  Weight: 91 kg

DRUGS (10)
  1. ONDANSETRON [Concomitant]
     Indication: VOMITING
     Dosage: 8 MG, 2X/DAY AS NEEDED
     Route: 048
     Dates: start: 20090721
  2. AVASTIN [Suspect]
     Indication: GLIOBLASTOMA MULTIFORME
     Dosage: 1287.5 MG, EVERY 3 WEEKS
     Route: 042
     Dates: start: 20090721
  3. NEUPOGEN [Suspect]
     Indication: CHEMOTHERAPY
     Dosage: UNK
     Route: 058
  4. DEXAMETHASONE [Concomitant]
     Indication: GLIOBLASTOMA MULTIFORME
     Dosage: 6 MG, UNK
     Route: 048
  5. METOCLOPRAMIDE [Concomitant]
     Indication: VOMITING
     Dosage: 10 MG, AS NEEDED
     Route: 048
     Dates: start: 20090721
  6. WARFARIN [Concomitant]
     Indication: DEEP VEIN THROMBOSIS
     Dosage: UNK
  7. PHENYTOIN [Suspect]
     Indication: GLIOBLASTOMA MULTIFORME
     Dosage: 50 MG, UNK
     Dates: end: 20090814
  8. CARBOPLATIN [Concomitant]
     Indication: GLIOBLASTOMA MULTIFORME
     Dosage: 50 MG, EVERY 3 WEEKS
     Route: 042
     Dates: start: 20090721
  9. VALPROATE SODIUM [Concomitant]
     Dosage: UNK
  10. NEULASTA [Suspect]
     Indication: CHEMOTHERAPY
     Dosage: 6 MG, EVERY 3 WEEKS
     Route: 058
     Dates: start: 20080722

REACTIONS (8)
  - CONFUSIONAL STATE [None]
  - CYTOKINE STORM [None]
  - BODY TEMPERATURE INCREASED [None]
  - DELIRIUM [None]
  - DEEP VEIN THROMBOSIS [None]
  - DERMATITIS ALLERGIC [None]
  - PETECHIAE [None]
  - IMPETIGO [None]
